FAERS Safety Report 13523986 (Version 2)
Quarter: 2018Q1

REPORT INFORMATION
  Report Type: Spontaneous
  Country: US (occurrence: US)
  Receive Date: 20170508
  Receipt Date: 20180215
  Transmission Date: 20180508
  Serious: No
  Sender: FDA-Public Use
  Company Number: US-VIFOR (INTERNATIONAL) INC.-VIT-2016-07800

PATIENT
  Age: 85 Year
  Sex: Female
  Weight: 69.92 kg

DRUGS (13)
  1. ERGOCALCIFEROL/ASCORBIC ACID/CALCIUM PANTOTHENATE/NICOTINAMIDE/PYRIDOXINE HYDROCHLORIDE/RETINOL/RIBO [Concomitant]
  2. VELTASSA [Suspect]
     Active Substance: PATIROMER
     Indication: HYPERKALAEMIA
     Dosage: 1 PKT IN 3 OZ. OF WATER
     Route: 048
     Dates: start: 20160427
  3. LOSARTIN [Concomitant]
     Active Substance: LOSARTAN
  4. ACETYLSALICYLIC ACID [Concomitant]
     Active Substance: ASPIRIN
  5. HYDROCHLOROTHIAZIDE. [Concomitant]
     Active Substance: HYDROCHLOROTHIAZIDE
  6. AMLODIPINE/ATORVASTATIN [Concomitant]
  7. CETIRIZINE [Concomitant]
     Active Substance: CETIRIZINE HYDROCHLORIDE
  8. SULFURIC ACID [Concomitant]
     Active Substance: SULFURIC ACID
  9. HYDRALAZINE [Concomitant]
     Active Substance: HYDRALAZINE HYDROCHLORIDE
  10. NASONEX [Concomitant]
     Active Substance: MOMETASONE FUROATE
  11. VELTASSA [Suspect]
     Active Substance: PATIROMER
     Dates: start: 201708
  12. IRON [Concomitant]
     Active Substance: IRON
  13. PRESERVISION AREDS [Concomitant]
     Active Substance: MINERALS\VITAMINS

REACTIONS (3)
  - Constipation [Recovered/Resolved]
  - Anorectal discomfort [Recovered/Resolved]
  - Product taste abnormal [Unknown]

NARRATIVE: CASE EVENT DATE: 20160427
